FAERS Safety Report 4507529-6 (Version None)
Quarter: 2004Q4

REPORT INFORMATION
  Report Type: 
  Country: None (occurrence: None)
  Receive Date: 20041018
  Receipt Date: 20040810
  Transmission Date: 20050328
  Serious: No
  Sender: FDA-Public Use
  Company Number: 208378

PATIENT
  Sex: Female

DRUGS (4)
  1. XOLAIR [Suspect]
     Indication: ASTHMA
     Dosage: SUBCUTANEOUS
     Route: 058
  2. CODEINE (CODEINE) [Concomitant]
  3. OS-CAL (CALCIUM CARBONATE) [Concomitant]
  4. ACTONEL [Concomitant]

REACTIONS (1)
  - DEPRESSION [None]
